FAERS Safety Report 10800708 (Version 2)
Quarter: 2016Q1

REPORT INFORMATION
  Report Type: Spontaneous
  Country: IT (occurrence: IT)
  Receive Date: 20150216
  Receipt Date: 20160211
  Transmission Date: 20160525
  Serious: Yes (Hospitalization, Disabling, Other)
  Sender: FDA-Public Use
  Company Number: IT-BRISTOL-MYERS SQUIBB COMPANY-20637864

PATIENT
  Age: 79 Year
  Sex: Female

DRUGS (1)
  1. COUMADIN [Suspect]
     Active Substance: WARFARIN SODIUM
     Indication: ATRIAL FIBRILLATION
     Dosage: 1 DF, PRN
     Route: 048
     Dates: start: 20120101

REACTIONS (4)
  - Subdural haematoma [Unknown]
  - Petit mal epilepsy [Unknown]
  - Off label use [Unknown]
  - Cardiac failure [Unknown]

NARRATIVE: CASE EVENT DATE: 20140320
